FAERS Safety Report 8218130-5 (Version None)
Quarter: 2012Q1

REPORT INFORMATION
  Report Type: 
  Country: None (occurrence: None)
  Receive Date: 20120319
  Receipt Date: 20120306
  Transmission Date: 20120608
  Serious: Yes (Hospitalization, Other)
  Sender: FDA-Public Use
  Company Number: US-ELI_LILLY_AND_COMPANY-US201106007673

PATIENT
  Sex: Male

DRUGS (7)
  1. FORTEO [Suspect]
     Indication: OSTEOPOROSIS
     Dosage: 20 UG, QD
     Dates: start: 20110101
  2. GALANTAMINE HYDROBROMIDE [Concomitant]
     Dosage: 24 MG, QD
  3. ATENOLOL [Concomitant]
     Dosage: 50 MG, QD
  4. NAMENDA [Concomitant]
     Dosage: 10 MG, BID
  5. ASPIRIN [Concomitant]
     Dosage: 324 MG, QD
  6. AMIODARONE HYDROCHLORIDE [Concomitant]
     Dosage: 200 MG, TID
  7. PLAVIX [Concomitant]
     Dosage: 75 MG, QD

REACTIONS (5)
  - SPINAL COLUMN INJURY [None]
  - POSTURE ABNORMAL [None]
  - MEDICATION ERROR [None]
  - FALL [None]
  - INJECTION SITE PAIN [None]
